FAERS Safety Report 19628474 (Version 1)
Quarter: 2021Q3

REPORT INFORMATION
  Report Type: Report from Study
  Country: US (occurrence: US)
  Receive Date: 20210728
  Receipt Date: 20210728
  Transmission Date: 20211014
  Serious: Yes (Other)
  Sender: FDA-Public Use
  Company Number: US-TAKEDA-2021TUS046308

PATIENT
  Sex: Male

DRUGS (2)
  1. LANADELUMAB [Suspect]
     Active Substance: LANADELUMAB
     Indication: IMMUNE SYSTEM DISORDER
     Dosage: 300 MILLIGRAM, Q2WEEKS
     Route: 058
  2. FIRAZYR [Concomitant]
     Active Substance: ICATIBANT ACETATE

REACTIONS (2)
  - Weight increased [Unknown]
  - Product dose omission issue [Unknown]
